FAERS Safety Report 6074810-1 (Version None)
Quarter: 2009Q1

REPORT INFORMATION
  Report Type: 
  Country: None (occurrence: None)
  Receive Date: 20090209
  Receipt Date: 20090202
  Transmission Date: 20090719
  Serious: No
  Sender: FDA-Public Use
  Company Number: 163109

PATIENT
  Age: 56 Year
  Sex: Male
  Weight: 81.6475 kg

DRUGS (2)
  1. PROPOFOL [Suspect]
     Dosage: 280 MG, INTRAVENOUS
     Route: 042
     Dates: start: 20081031, end: 20081031
  2. GLYCOPYRROLATE [Concomitant]

REACTIONS (2)
  - CONJUNCTIVAL HYPERAEMIA [None]
  - EYE PAIN [None]
